FAERS Safety Report 20445957 (Version 3)
Quarter: 2022Q1

REPORT INFORMATION
  Report Type: Other
  Country: US (occurrence: None)
  Receive Date: 20220208
  Receipt Date: 20220224
  Transmission Date: 20220423
  Serious: Yes (Other)
  Sender: FDA-Public Use
  Company Number: US-ROCHE-3015223

PATIENT
  Age: 59 Year
  Sex: Female
  Weight: 89.892 kg

DRUGS (11)
  1. OCREVUS [Suspect]
     Active Substance: OCRELIZUMAB
     Indication: Multiple sclerosis
     Dosage: DATE OF TREATMENT: 11/OCT/2018, 11/OCT/2019, 01/JUN/2021, 28/JUN/2021 AND 18/DEC/2020. IV 600 MG EVE
     Route: 042
     Dates: start: 20171004
  2. DULOXETINE [Concomitant]
     Active Substance: DULOXETINE
  3. IBUPROFEN [Concomitant]
     Active Substance: IBUPROFEN
  4. FAMOTIDINE [Concomitant]
     Active Substance: FAMOTIDINE
  5. SOLIFENACIN [Concomitant]
     Active Substance: SOLIFENACIN
  6. PHENTERMINE [Concomitant]
     Active Substance: PHENTERMINE
  7. OXYCODONE [Concomitant]
     Active Substance: OXYCODONE
  8. METFORMIN [Concomitant]
     Active Substance: METFORMIN HYDROCHLORIDE
  9. LISINOPRIL [Concomitant]
     Active Substance: LISINOPRIL
  10. ALBUTEROL [Concomitant]
     Active Substance: ALBUTEROL
  11. LEVOTHYROXINE [Concomitant]
     Active Substance: LEVOTHYROXINE

REACTIONS (4)
  - COVID-19 [Recovered/Resolved]
  - Multiple sclerosis relapse [Not Recovered/Not Resolved]
  - Fall [Unknown]
  - Gait disturbance [Not Recovered/Not Resolved]

NARRATIVE: CASE EVENT DATE: 20211228
